FAERS Safety Report 20128275 (Version 1)
Quarter: 2021Q4

REPORT INFORMATION
  Report Type: Spontaneous
  Country: RU (occurrence: RU)
  Receive Date: 20211129
  Receipt Date: 20211129
  Transmission Date: 20220303
  Serious: Yes (Hospitalization, Other)
  Sender: FDA-Public Use
  Company Number: RU-JNJFOC-20211147150

PATIENT
  Age: 40 Year
  Sex: Female
  Weight: 57 kg

DRUGS (8)
  1. UPTRAVI [Suspect]
     Active Substance: SELEXIPAG
     Indication: Pulmonary arterial hypertension
     Route: 048
     Dates: start: 20201103, end: 20211116
  2. RIOCIGUAT [Concomitant]
     Active Substance: RIOCIGUAT
  3. MACITENTAN [Concomitant]
     Active Substance: MACITENTAN
  4. WARFARIN [Concomitant]
     Active Substance: WARFARIN
  5. TORSEMIDE [Concomitant]
     Active Substance: TORSEMIDE
  6. SPIRONOLACTONE [Concomitant]
     Active Substance: SPIRONOLACTONE
  7. IVABRADINE [Concomitant]
     Active Substance: IVABRADINE
  8. FERROUS SULFATE [Concomitant]
     Active Substance: FERROUS SULFATE

REACTIONS (3)
  - Cardiac failure [Unknown]
  - Pulmonary arterial hypertension [Unknown]
  - Dyspepsia [Unknown]

NARRATIVE: CASE EVENT DATE: 20211105
